FAERS Safety Report 6517508-5 (Version None)
Quarter: 2009Q4

REPORT INFORMATION
  Report Type: 
  Country: None (occurrence: None)
  Receive Date: 20091224
  Receipt Date: 20091214
  Transmission Date: 20100525
  Serious: Yes (Other)
  Sender: FDA-Public Use
  Company Number: GB-PURDUE-USA-2009-0041509

PATIENT
  Age: 70 Year
  Sex: Male

DRUGS (3)
  1. TRAMADOL HCL [Suspect]
     Indication: PAIN
     Dosage: 300 MG, UNK
     Route: 048
     Dates: start: 20091028
  2. TRAMADOL HCL [Suspect]
     Dosage: 50 UNK, UNK
     Route: 048
  3. AMITRIPTYLINE [Suspect]
     Indication: NEURALGIA
     Dosage: 20 MG, UNK
     Route: 048

REACTIONS (3)
  - ASTHENIA [None]
  - DRUG INTERACTION [None]
  - WITHDRAWAL SYNDROME [None]
